FAERS Safety Report 5125802-8 (Version None)
Quarter: 2006Q3

REPORT INFORMATION
  Report Type: 
  Country: None (occurrence: None)
  Receive Date: 20060817
  Receipt Date: 20060223
  Transmission Date: 20061208
  Serious: Yes (Other)
  Sender: FDA-Public Use
  Company Number: 2006030647

PATIENT
  Sex: Female

DRUGS (1)
  1. PREDNISONE TAB [Suspect]
     Indication: ILL-DEFINED DISORDER

REACTIONS (2)
  - ANAPHYLACTIC REACTION [None]
  - WOLFF-PARKINSON-WHITE SYNDROME [None]
